FAERS Safety Report 11494966 (Version 1)
Quarter: 2015Q3

REPORT INFORMATION
  Report Type: Spontaneous
  Country: US (occurrence: US)
  Receive Date: 20150911
  Receipt Date: 20150911
  Transmission Date: 20151125
  Serious: No
  Sender: FDA-Public Use
  Company Number: US-TEVA-583295USA

PATIENT
  Sex: Female
  Weight: 90.35 kg

DRUGS (19)
  1. LISINOPRIL. [Suspect]
     Active Substance: LISINOPRIL
     Route: 065
  2. CELEBREX [Suspect]
     Active Substance: CELECOXIB
     Indication: RHEUMATOID ARTHRITIS
     Dosage: 200 MILLIGRAM DAILY;
     Route: 048
  3. HYDROCODONE W/ACETAMINOPHEN [Concomitant]
     Active Substance: ACETAMINOPHEN\HYDROCODONE BITARTRATE
     Dosage: 10/325
  4. MOBIC [Concomitant]
     Active Substance: MELOXICAM
  5. CELEBREX [Suspect]
     Active Substance: CELECOXIB
     Indication: OSTEOPOROSIS
  6. ISOSORBIDE. [Suspect]
     Active Substance: ISOSORBIDE
     Route: 065
  7. ASPIRIN. [Concomitant]
     Active Substance: ASPIRIN
  8. VITAMIN D [Concomitant]
     Active Substance: CHOLECALCIFEROL
     Dosage: 56000 UNITS
  9. CELEBREX [Suspect]
     Active Substance: CELECOXIB
     Indication: FIBROMYALGIA
  10. LOSARTAN. [Concomitant]
     Active Substance: LOSARTAN
     Dosage: 100/25 MG
  11. METOPROLOL [Suspect]
     Active Substance: METOPROLOL
     Route: 065
  12. CELEBREX [Suspect]
     Active Substance: CELECOXIB
     Indication: ARTHRITIS
  13. ALPRAZOLAM. [Concomitant]
     Active Substance: ALPRAZOLAM
     Dosage: 2 MILLIGRAM DAILY;
  14. CARBAMAZEPINE. [Concomitant]
     Active Substance: CARBAMAZEPINE
     Indication: SEIZURE
  15. OMEPRAZOLE. [Concomitant]
     Active Substance: OMEPRAZOLE
  16. CLARITIN [Concomitant]
     Active Substance: LORATADINE
     Dosage: 20 MILLIGRAM DAILY;
  17. LEFLUNOMIDE. [Suspect]
     Active Substance: LEFLUNOMIDE
     Route: 065
  18. DILTIAZEM [Concomitant]
     Active Substance: DILTIAZEM
  19. FLUTICASONE PROPIONATE. [Concomitant]
     Active Substance: FLUTICASONE PROPIONATE
     Dosage: 100 MICROGRAM DAILY;

REACTIONS (3)
  - Drug hypersensitivity [Unknown]
  - Malaise [Unknown]
  - Pain [Unknown]
